FAERS Safety Report 25736890 (Version 1)
Quarter: 2025Q3

REPORT INFORMATION
  Report Type: Spontaneous
  Country: US (occurrence: None)
  Receive Date: 20250828
  Receipt Date: 20250828
  Transmission Date: 20251020
  Serious: Yes (Other)
  Sender: FDA-CTU
  Company Number: None

PATIENT
  Age: 63 Year
  Sex: Female
  Weight: 58.5 kg

DRUGS (7)
  1. RISEDRONATE SODIUM [Suspect]
     Active Substance: RISEDRONATE SODIUM
     Indication: Osteoporosis
     Dosage: FREQUENCY : MONTHLY;?
     Route: 048
     Dates: start: 20250723, end: 20250823
  2. ESTRADIOL [Concomitant]
     Active Substance: ESTRADIOL
  3. pergesterone [Concomitant]
  4. TESTOSTERONE [Concomitant]
     Active Substance: TESTOSTERONE
  5. CALCIUM [Concomitant]
     Active Substance: CALCIUM
  6. VITAMIN D [Concomitant]
     Active Substance: VITAMIN D NOS
  7. VITAMIN C [Concomitant]
     Active Substance: ASCORBIC ACID

REACTIONS (8)
  - Back pain [None]
  - Arthritis [None]
  - Back pain [None]
  - Arthralgia [None]
  - Gait disturbance [None]
  - Pain in extremity [None]
  - Peripheral swelling [None]
  - Headache [None]

NARRATIVE: CASE EVENT DATE: 20250823
